FAERS Safety Report 19756881 (Version 1)
Quarter: 2021Q3

REPORT INFORMATION
  Report Type: Spontaneous
  Country: FR (occurrence: FR)
  Receive Date: 20210827
  Receipt Date: 20210827
  Transmission Date: 20211014
  Serious: Yes (Death, Life-Threatening)
  Sender: FDA-Public Use
  Company Number: FR-TEVA-2021-FR-1944316

PATIENT
  Age: 57 Year
  Sex: Female

DRUGS (7)
  1. CHLORHYDRATE DE TRAMADOL [Suspect]
     Active Substance: TRAMADOL HYDROCHLORIDE
     Indication: ABDOMINAL PAIN
     Route: 065
     Dates: start: 20210623
  2. ACUPAN [Suspect]
     Active Substance: NEFOPAM HYDROCHLORIDE
     Indication: ABDOMINAL PAIN
     Route: 065
     Dates: start: 20210623
  3. VAXZEVRIA [Suspect]
     Active Substance: AZD-1222
     Indication: PROPHYLAXIS
     Dosage: D1, 0.5 ML
     Route: 065
     Dates: start: 20210611, end: 20210611
  4. VALSARTAN. [Concomitant]
     Active Substance: VALSARTAN
  5. OXAZEPAM. [Concomitant]
     Active Substance: OXAZEPAM
  6. CHLORHYDRATE DE PAROXETINE ANHYDRE [Concomitant]
     Active Substance: PAROXETINE
  7. LEVOTHYROX [Concomitant]
     Active Substance: LEVOTHYROXINE

REACTIONS (1)
  - Cardio-respiratory arrest [Fatal]

NARRATIVE: CASE EVENT DATE: 20210627
